FAERS Safety Report 9409873 (Version 4)
Quarter: 2015Q2

REPORT INFORMATION
  Report Type: Spontaneous
  Country: AU (occurrence: AU)
  Receive Date: 20130719
  Receipt Date: 20150501
  Transmission Date: 20150821
  Serious: Yes (Other)
  Sender: FDA-Public Use
  Company Number: AU-RANBAXY-2013RR-71330

PATIENT
  Age: 66 Year
  Sex: Male

DRUGS (4)
  1. DROPERIDOL. [Suspect]
     Active Substance: DROPERIDOL
     Indication: ABNORMAL BEHAVIOUR
     Dosage: UNK
     Route: 065
  2. HALOPERIDOL. [Suspect]
     Active Substance: HALOPERIDOL
     Indication: PRODUCT USED FOR UNKNOWN INDICATION
     Dosage: UNK
     Route: 065
  3. MIDAZOLAM [Suspect]
     Active Substance: MIDAZOLAM\MIDAZOLAM HYDROCHLORIDE
     Indication: ABNORMAL BEHAVIOUR
     Dosage: 28 MG
     Route: 065
  4. MIDAZOLAM [Suspect]
     Active Substance: MIDAZOLAM\MIDAZOLAM HYDROCHLORIDE
     Indication: ABNORMAL BEHAVIOUR
     Dosage: 2.5 MG
     Route: 065

REACTIONS (2)
  - Hypotension [Unknown]
  - Sedation [Unknown]
